FAERS Safety Report 6191481-4 (Version None)
Quarter: 2009Q2

REPORT INFORMATION
  Report Type: 
  Country: None (occurrence: None)
  Receive Date: 20090515
  Receipt Date: 20090512
  Transmission Date: 20091009
  Serious: Yes (Life-Threatening)
  Sender: FDA-Public Use
  Company Number: GB-JNJFOC-20090502996

PATIENT
  Sex: Female

DRUGS (3)
  1. DURAGESIC-100 [Suspect]
     Indication: PROCEDURAL PAIN
     Route: 062
  2. FENTANYL CITRATE [Suspect]
     Indication: PROCEDURAL PAIN
     Route: 008
  3. DIAMORPHINE [Suspect]
     Indication: PROCEDURAL PAIN
     Route: 008

REACTIONS (6)
  - INTRACRANIAL HYPOTENSION [None]
  - LOSS OF CONSCIOUSNESS [None]
  - OFF LABEL USE [None]
  - POST PROCEDURAL COMPLICATION [None]
  - PULMONARY OEDEMA [None]
  - VOMITING [None]
